FAERS Safety Report 14907818 (Version 1)
Quarter: 2018Q2

REPORT INFORMATION
  Report Type: Spontaneous
  Country: US (occurrence: US)
  Receive Date: 20180429
  Receipt Date: 20180429
  Transmission Date: 20180711
  Serious: Yes (Other)
  Sender: FDA-Public Use
  Company Number: None

PATIENT
  Age: 34 Year
  Sex: Female
  Weight: 108.86 kg

DRUGS (1)
  1. NEXPLANON [Suspect]
     Active Substance: ETONOGESTREL

REACTIONS (12)
  - Uterine haemorrhage [None]
  - Acne [None]
  - Dehydration [None]
  - Fatigue [None]
  - Oligomenorrhoea [None]
  - Hair growth abnormal [None]
  - Headache [None]
  - Breast pain [None]
  - Hyperaesthesia [None]
  - Hysterectomy [None]
  - Muscle spasms [None]
  - Uterine leiomyoma [None]

NARRATIVE: CASE EVENT DATE: 20170601
